FAERS Safety Report 5709913-1 (Version None)
Quarter: 2008Q2

REPORT INFORMATION
  Report Type: 
  Country: None (occurrence: None)
  Receive Date: 20080418
  Receipt Date: 20070430
  Transmission Date: 20081010
  Serious: No
  Sender: FDA-Public Use
  Company Number: US-ASTRAZENECA-2007UW08819

PATIENT
  Age: 56 Year
  Sex: Female
  Weight: 86.2 kg

DRUGS (3)
  1. TOPROL-XL [Suspect]
     Indication: HYPERTENSION
     Route: 048
     Dates: start: 20070301
  2. HYDROCHLOROTHIAZIDE [Concomitant]
  3. HYDROCHLOROTHIAZIDE [Concomitant]

REACTIONS (2)
  - DIARRHOEA [None]
  - GASTROINTESTINAL SOUNDS ABNORMAL [None]
